FAERS Safety Report 19182557 (Version 1)
Quarter: 2021Q2

REPORT INFORMATION
  Report Type: Spontaneous
  Country: FR (occurrence: FR)
  Receive Date: 20210426
  Receipt Date: 20210426
  Transmission Date: 20210717
  Serious: Yes (Other)
  Sender: FDA-Public Use
  Company Number: FR-ORGANON-O2104FRA001800

PATIENT
  Age: 26 Year
  Sex: Male
  Weight: 52 kg

DRUGS (1)
  1. PROPECIA [Suspect]
     Active Substance: FINASTERIDE
     Indication: ALOPECIA
     Dosage: 1 MILLIGRAM, QD (1 TABLET PER DAY)
     Route: 048
     Dates: start: 20180601, end: 20190101

REACTIONS (5)
  - Suicidal ideation [Recovered/Resolved]
  - Loss of libido [Recovered/Resolved]
  - Major depression [Recovered/Resolved]
  - Erectile dysfunction [Recovered/Resolved]
  - Acne [Recovered/Resolved]

NARRATIVE: CASE EVENT DATE: 20180901
